FAERS Safety Report 7475385-2 (Version None)
Quarter: 2011Q2

REPORT INFORMATION
  Report Type: 
  Country: None (occurrence: None)
  Receive Date: 20110512
  Receipt Date: 20110505
  Transmission Date: 20111010
  Serious: Yes (Other)
  Sender: FDA-Public Use
  Company Number: GB-B.I. PHARMACEUTICALS,INC./RIDGEFIELD-2011-UK-00459UK

PATIENT
  Age: 70 Year
  Sex: Female

DRUGS (6)
  1. AMLODIPINE BESYLATE [Concomitant]
     Indication: HYPERTENSION
     Dosage: 10 MG
     Route: 048
  2. MORPHINE SULFATE [Concomitant]
     Indication: PAIN
     Dosage: 20 MG
     Route: 048
  3. PRADAXA [Suspect]
     Indication: THROMBOSIS PROPHYLAXIS
     Dosage: 220 MG
     Route: 048
     Dates: start: 20110405, end: 20110415
  4. NATURETIN-5 [Concomitant]
     Indication: HYPERTENSION
     Dosage: 2.5 MG
     Route: 048
  5. ACETAMINOPHEN [Concomitant]
     Indication: PAIN
     Dosage: 4 G
     Route: 048
  6. SENNA-MINT WAF [Concomitant]
     Indication: CONSTIPATION
     Dosage: 15 MG
     Route: 048

REACTIONS (1)
  - WOUND SECRETION [None]
